FAERS Safety Report 11948064 (Version 1)
Quarter: 2016Q1

REPORT INFORMATION
  Report Type: Spontaneous
  Country: US (occurrence: US)
  Receive Date: 20160125
  Receipt Date: 20160125
  Transmission Date: 20160526
  Serious: No
  Sender: FDA-Public Use
  Company Number: US-PERRIGO-15US009693

PATIENT
  Age: 66 Year
  Sex: Female
  Weight: 113.38 kg

DRUGS (3)
  1. NYSTATIN RX 100000 U/G 1P6 [Suspect]
     Active Substance: NYSTATIN
     Indication: RASH
     Dosage: SMALL AMOUNT, PRN
     Route: 061
  2. LYRICA [Concomitant]
     Active Substance: PREGABALIN
     Indication: BURNING SENSATION
     Dosage: 300 MG
     Route: 065
     Dates: start: 2014
  3. NYSTATIN RX 100000 U/G 1P6 [Suspect]
     Active Substance: NYSTATIN
     Indication: WOUND

REACTIONS (5)
  - Application site erythema [Unknown]
  - Application site exfoliation [Unknown]
  - Skin texture abnormal [None]
  - Expired product administered [Unknown]
  - Off label use [Unknown]

NARRATIVE: CASE EVENT DATE: 201508
